FAERS Safety Report 9821997 (Version 1)
Quarter: 2014Q1

REPORT INFORMATION
  Report Type: Report from Study
  Country: FR (occurrence: FR)
  Receive Date: 20140116
  Receipt Date: 20140116
  Transmission Date: 20141002
  Serious: Yes (Other)
  Sender: FDA-Public Use
  Company Number: FR-US-EMD SERONO, INC.-7261779

PATIENT
  Sex: Female

DRUGS (2)
  1. PERGOVERIS [Suspect]
     Indication: IN VITRO FERTILISATION
     Route: 058
  2. GONAL-F [Suspect]
     Indication: IN VITRO FERTILISATION
     Route: 058

REACTIONS (1)
  - Abortion spontaneous [Unknown]
